FAERS Safety Report 19295720 (Version 1)
Quarter: 2021Q2

REPORT INFORMATION
  Report Type: Spontaneous
  Country: DE (occurrence: DE)
  Receive Date: 20210524
  Receipt Date: 20210524
  Transmission Date: 20210717
  Serious: Yes (Other)
  Sender: FDA-Public Use
  Company Number: DE-PFIZER INC-2021520782

PATIENT
  Sex: Female
  Weight: 57 kg

DRUGS (16)
  1. CIRCADIN [Concomitant]
     Active Substance: MELATONIN
     Dosage: FREQ:{ASNECESSARY};
     Route: 065
     Dates: start: 201504
  2. KELTICAN [CYANOCOBALAMIN;FOLIC ACID;URIDINE TRIPHOSPHATE SODIUM] [Concomitant]
     Route: 065
     Dates: start: 202102
  3. ASPIRIN PROTECT [Concomitant]
     Active Substance: ASPIRIN
     Route: 065
     Dates: start: 202006
  4. DEKRISTOL [Concomitant]
     Active Substance: CHOLECALCIFEROL
     Route: 065
     Dates: start: 201104
  5. THIOGAMMA TURBO SET [Concomitant]
     Route: 065
     Dates: start: 202104
  6. THIOGAMMA [Concomitant]
     Active Substance: .ALPHA.-LIPOIC ACID
     Route: 048
     Dates: start: 202104
  7. HYDROCORTISONE. [Suspect]
     Active Substance: HYDROCORTISONE
     Dosage: 2 DF, 1X/DAY
     Route: 065
     Dates: start: 202010
  8. LYRICA [Concomitant]
     Active Substance: PREGABALIN
     Dosage: FREQ:{ASNECESSARY};
     Route: 065
     Dates: start: 202104
  9. CALCIMAGON D3 [Concomitant]
     Active Substance: CALCIUM\CHOLECALCIFEROL
     Dosage: 1 DF, 1X/DAY
     Route: 065
     Dates: start: 202004
  10. GYNOKADIN [ESTRADIOL] [Concomitant]
     Active Substance: ESTRADIOL
     Route: 065
     Dates: start: 201904, end: 202010
  11. EUTHYROX [Concomitant]
     Active Substance: LEVOTHYROXINE SODIUM
     Route: 065
     Dates: start: 200104
  12. MYFORTIC [Suspect]
     Active Substance: MYCOPHENOLATE SODIUM
     Dosage: 2 DF, 1X/DAY
     Route: 065
     Dates: start: 202010
  13. UTROGEST [Concomitant]
     Active Substance: PROGESTERONE
     Route: 065
     Dates: start: 201304, end: 202010
  14. THYBON [Concomitant]
     Active Substance: LIOTHYRONINE HYDROCHLORIDE
     Route: 065
     Dates: start: 201104
  15. ADVAGRAF [Suspect]
     Active Substance: TACROLIMUS
     Dosage: 2 DF, 1X/DAY
     Route: 065
     Dates: start: 202010
  16. MAGNESIUM VERLA [MAGNESIUM] [Concomitant]
     Route: 065
     Dates: start: 200104

REACTIONS (15)
  - Abdominal discomfort [Unknown]
  - Constipation [Not Recovered/Not Resolved]
  - Tachycardia [Not Recovered/Not Resolved]
  - Abdominal distension [Not Recovered/Not Resolved]
  - Myalgia [Not Recovered/Not Resolved]
  - Alopecia [Not Recovered/Not Resolved]
  - Neuralgia [Not Recovered/Not Resolved]
  - Tongue discomfort [Not Recovered/Not Resolved]
  - Arthralgia [Not Recovered/Not Resolved]
  - Menstrual disorder [Not Recovered/Not Resolved]
  - Hypotension [Not Recovered/Not Resolved]
  - Ataxia [Not Recovered/Not Resolved]
  - Leukopenia [Not Recovered/Not Resolved]
  - Muscular weakness [Not Recovered/Not Resolved]
  - Vision blurred [Not Recovered/Not Resolved]

NARRATIVE: CASE EVENT DATE: 202010
